FAERS Safety Report 18414420 (Version 2)
Quarter: 2021Q1

REPORT INFORMATION
  Report Type: Spontaneous
  Country: IT (occurrence: IT)
  Receive Date: 20201022
  Receipt Date: 20210105
  Transmission Date: 20210419
  Serious: Yes (Hospitalization, Other)
  Sender: FDA-Public Use
  Company Number: IT-BRISTOL-MYERS SQUIBB COMPANY-BMS-2020-086581

PATIENT
  Age: 85 Year
  Sex: Female

DRUGS (2)
  1. ELIQUIS [Suspect]
     Active Substance: APIXABAN
     Indication: CEREBROVASCULAR ACCIDENT PROPHYLAXIS
     Dosage: 5MG DAILY
     Route: 048
     Dates: start: 20201007, end: 20201013
  2. LANOXIN [Interacting]
     Active Substance: DIGOXIN
     Indication: ATRIAL FIBRILLATION
     Dosage: 1 DF DAILY
     Route: 048

REACTIONS (2)
  - Drug interaction [Unknown]
  - Arrhythmia [Unknown]

NARRATIVE: CASE EVENT DATE: 20201013
